FAERS Safety Report 7739172-X (Version None)
Quarter: 2011Q3

REPORT INFORMATION
  Report Type: 
  Country: None (occurrence: None)
  Receive Date: 20110909
  Receipt Date: 20110901
  Transmission Date: 20111222
  Serious: Yes (Other)
  Sender: FDA-Public Use
  Company Number: US-SHIRE-ALL1-2011-03155

PATIENT
  Sex: Female

DRUGS (10)
  1. VYVANSE [Suspect]
     Indication: ATTENTION DEFICIT/HYPERACTIVITY DISORDER
     Dosage: 100 MG, UNKNOWN(UNKNOWN MG DAILY TO EQUAL 100MG DAILY)
     Route: 048
     Dates: start: 20100101
  2. VYVANSE [Suspect]
     Dosage: UNK, UNKNOWN(DOSE OF VYVANNSE INCREASE TO UNK MG)
     Route: 048
  3. FLUOXETINE                         /00724402/ [Concomitant]
     Indication: PRODUCT USED FOR UNKNOWN INDICATION
     Dosage: UNK, UNKNOWN
     Route: 065
  4. CITALOPRAM HYDROBROMIDE [Concomitant]
     Indication: PRODUCT USED FOR UNKNOWN INDICATION
     Dosage: UNK, UNKNOWN
     Route: 048
  5. LAMOTRIGINE [Suspect]
     Dosage: UNK(CUTTING AN UNKNOWN MG TABLET)
  6. LAMOTRIGINE [Suspect]
     Dosage: UNK, 1X/DAY:QD(TAKING UP TO 150 MG DAILY)
     Dates: start: 20080101
  7. ASCORBIC ACID [Concomitant]
     Indication: PRODUCT USED FOR UNKNOWN INDICATION
     Dosage: UNK, UNKNOWN
     Route: 048
  8. LAMOTRIGINE [Suspect]
     Indication: DEPRESSION
     Dosage: 100 MG, 1X/DAY:QD
     Route: 048
     Dates: start: 20080101
  9. LAMOTRIGINE [Suspect]
     Indication: DEPRESSION
     Dosage: 100 MG, UNKNOWN
     Route: 048
     Dates: start: 20080101
  10. LEVOTHYROXINE SODIUM [Concomitant]
     Indication: HYPOTHYROIDISM
     Dosage: UNK, UNKNOWN
     Route: 048

REACTIONS (12)
  - VOMITING [None]
  - HAEMATOCHEZIA [None]
  - RASH [None]
  - HEADACHE [None]
  - NAUSEA [None]
  - RHABDOMYOLYSIS [None]
  - GALLBLADDER DISORDER [None]
  - DIZZINESS [None]
  - PAIN [None]
  - DIARRHOEA [None]
  - DRUG INTERACTION [None]
  - OVERDOSE [None]
